FAERS Safety Report 8261855 (Version 3)
Quarter: 2012Q4

REPORT INFORMATION
  Report Type: 
  Country: DE (occurrence: DE)
  Receive Date: 20111123
  Receipt Date: 20120907
  Transmission Date: 20130627
  Serious: Yes (Hospitalization)
  Sender: FDA-Public Use
  Company Number: PHHY2011DE100711

PATIENT
  Sex: Male
  Weight: 32 kg

DRUGS (2)
  1. RITALIN LA [Suspect]
     Indication: ATTENTION DEFICIT/HYPERACTIVITY DISORDER
     Dosage: 20 mg, QD
     Route: 048
     Dates: start: 201110, end: 20111114
  2. RITALIN LA [Suspect]
     Dosage: 10 mg, QD
     Route: 048
     Dates: start: 20111115, end: 201111

REACTIONS (2)
  - Deafness [Recovered/Resolved]
  - Ear discomfort [Recovered/Resolved]
